FAERS Safety Report 8349264-2 (Version None)
Quarter: 2012Q2

REPORT INFORMATION
  Report Type: 
  Country: None (occurrence: None)
  Receive Date: 20120510
  Receipt Date: 20120504
  Transmission Date: 20120825
  Serious: Yes (Other)
  Sender: FDA-Public Use
  Company Number: PHHY2011CA82996

PATIENT
  Sex: Female

DRUGS (4)
  1. VITAMIN D [Concomitant]
     Dosage: 1000 IU, QD
  2. GILENYA [Suspect]
     Indication: RELAPSING-REMITTING MULTIPLE SCLEROSIS
     Dosage: 0.5 MG, DAILY
     Route: 048
     Dates: start: 20110706, end: 20111102
  3. SYNTHROID [Concomitant]
     Dosage: .375 MG, OT
  4. GILENYA [Suspect]
     Dosage: 0.5 MG, DAILY
     Route: 048
     Dates: start: 20111110

REACTIONS (4)
  - EXOPHTHALMOS [None]
  - FOREIGN BODY SENSATION IN EYES [None]
  - EYE SWELLING [None]
  - INTRAOCULAR PRESSURE INCREASED [None]
